FAERS Safety Report 9905435 (Version 2)
Quarter: 2014Q3

REPORT INFORMATION
  Report Type: Spontaneous
  Country: US (occurrence: US)
  Receive Date: 20140218
  Receipt Date: 20140718
  Transmission Date: 20150326
  Serious: Yes (Death, Hospitalization, Other)
  Sender: FDA-Public Use
  Company Number: US-BAYER-2014-024341

PATIENT
  Age: 65 Year
  Sex: Male
  Weight: 72.25 kg

DRUGS (1)
  1. NEXAVAR [Suspect]
     Active Substance: SORAFENIB
     Indication: RENAL CANCER
     Dosage: 200 MG, BID
     Route: 048
     Dates: start: 20110301, end: 20140216

REACTIONS (16)
  - Hyperlipidaemia [None]
  - Renal cell carcinoma [Fatal]
  - Hypertension [None]
  - Haemoptysis [None]
  - Rhonchi [None]
  - Abdominal tenderness [None]
  - Cough [None]
  - Pleuritic pain [None]
  - Chronic obstructive pulmonary disease [None]
  - Decreased appetite [None]
  - Gastrointestinal disorder [None]
  - Weight decreased [None]
  - Diarrhoea [None]
  - Gallbladder oedema [None]
  - Back pain [None]
  - Pneumonia [None]

NARRATIVE: CASE EVENT DATE: 201201
